FAERS Safety Report 7600738-9 (Version None)
Quarter: 2011Q2

REPORT INFORMATION
  Report Type: 
  Country: None (occurrence: None)
  Receive Date: 20110629
  Receipt Date: 20110620
  Transmission Date: 20111010
  Serious: Yes (Life-Threatening, Hospitalization)
  Sender: FDA-Public Use
  Company Number: LEO-2011-00421

PATIENT
  Age: 70 Year
  Sex: Female

DRUGS (25)
  1. KEPPRA [Concomitant]
  2. NEXIUM [Concomitant]
  3. EUPRESSYL (URAPIDIL) [Concomitant]
  4. OXYNORMORO (OXYCODONE HYDROCHLORIDE) [Concomitant]
  5. ACETAMINOPHEN [Concomitant]
  6. AMLOR (AMLODIPINE BBESILATE) [Concomitant]
  7. NICARDIPINE HYDROCHLORIDE [Concomitant]
  8. EUPANTHOL (PANTOPRAZOLE) [Concomitant]
  9. INNOHEP [Suspect]
     Indication: PULMONARY EMBOLISM
     Dosage: 1 DOSAGE FORMS, SUBCUTANEOUS; (10000 IU) , SUBCUTANEOUS
     Route: 058
     Dates: start: 20110101
  10. INNOHEP [Suspect]
     Indication: PULMONARY EMBOLISM
     Dosage: 1 DOSAGE FORMS, SUBCUTANEOUS; (10000 IU) , SUBCUTANEOUS
     Route: 058
     Dates: start: 20110327, end: 20110412
  11. PREDNISOLONE [Suspect]
     Indication: PRODUCT USED FOR UNKNOWN INDICATION
     Dosage: 80 MG, ORAL
     Route: 048
     Dates: start: 20110410, end: 20110412
  12. CLONAZEPAM [Concomitant]
  13. OXYCONTIN [Concomitant]
  14. FOSAMAX [Concomitant]
  15. SUTENT [Suspect]
     Indication: RENAL CANCER
     Dosage: 35.5 MG, ORAL
     Route: 048
     Dates: start: 20090819, end: 20110323
  16. LEVOTHYROXINE SODIUM [Concomitant]
  17. POLYETHYLENE GLYCOL [Concomitant]
  18. SPASFON-LYOC (PHLOROGLUCINOL) [Concomitant]
  19. ATENOLOL [Concomitant]
  20. PROCTOLOGY (TRIMEBUTINE [Concomitant]
  21. APROVEL (IRBESARTAN) [Concomitant]
  22. METHYLPREDNISOLONE [Concomitant]
  23. KETOPROFEN [Suspect]
     Dosage: 2 DOSAGE FORMS, ORAL
     Route: 048
  24. MANNITOL [Concomitant]
  25. AMITRIPTYLINE HCL [Concomitant]

REACTIONS (18)
  - THROMBOSIS [None]
  - OEDEMA PERIPHERAL [None]
  - ENTEROCOCCUS TEST POSITIVE [None]
  - PROTEUS TEST POSITIVE [None]
  - PALLOR [None]
  - GASTRIC ULCER HAEMORRHAGE [None]
  - HAEMODYNAMIC INSTABILITY [None]
  - GINGIVAL BLEEDING [None]
  - BLOOD PRESSURE DECREASED [None]
  - DIZZINESS [None]
  - HAEMOGLOBIN DECREASED [None]
  - POTENTIATING DRUG INTERACTION [None]
  - SPINAL COMPRESSION FRACTURE [None]
  - PAIN [None]
  - SEPSIS [None]
  - EPILEPSY [None]
  - PURPURA [None]
  - HAEMATEMESIS [None]
